FAERS Safety Report 16692457 (Version 2)
Quarter: 2019Q3

REPORT INFORMATION
  Report Type: Spontaneous
  Country: US (occurrence: US)
  Receive Date: 20190812
  Receipt Date: 20190926
  Transmission Date: 20191004
  Serious: No
  Sender: FDA-Public Use
  Company Number: US-MYLANLABS-2019M1071448

PATIENT
  Sex: Female

DRUGS (1)
  1. ESOMEPRAZOLE MAGNESIUM D/R [Suspect]
     Active Substance: ESOMEPRAZOLE MAGNESIUM
     Indication: PEPTIC ULCER
     Dosage: UNK
     Route: 048

REACTIONS (5)
  - Amnesia [Unknown]
  - Malaise [Unknown]
  - Gastrointestinal disorder [Unknown]
  - Paraesthesia [Unknown]
  - Vitamin B12 increased [Not Recovered/Not Resolved]
